FAERS Safety Report 5402073-6 (Version None)
Quarter: 2007Q3

REPORT INFORMATION
  Report Type: 
  Country: None (occurrence: None)
  Receive Date: 20070727
  Receipt Date: 20051205
  Transmission Date: 20080115
  Serious: Yes (Hospitalization)
  Sender: FDA-Public Use
  Company Number: THYM-10759

PATIENT
  Age: 48 Year
  Sex: Female
  Weight: 104 kg

DRUGS (7)
  1. THYMOGLOBULIN [Suspect]
     Indication: LIVER TRANSPLANT
     Dosage: 1.5 MG/ KG QD IV
     Route: 042
     Dates: start: 20050930, end: 20051004
  2. PROGRAF [Concomitant]
  3. CELLCEPT [Concomitant]
  4. SYNTHROID [Concomitant]
  5. BACTRIM [Concomitant]
  6. PREVACID [Concomitant]
  7. GANCICLOVIR [Concomitant]

REACTIONS (1)
  - ANAEMIA [None]
